FAERS Safety Report 5533686-9 (Version None)
Quarter: 2007Q4

REPORT INFORMATION
  Report Type: 
  Country: None (occurrence: None)
  Receive Date: 20071129
  Receipt Date: 20071119
  Transmission Date: 20080405
  Serious: Yes (Other)
  Sender: FDA-Public Use
  Company Number: TUK2007A00132

PATIENT
  Age: 75 Year
  Sex: Female

DRUGS (1)
  1. ACTOS [Suspect]
     Dosage: 15 MG ORAL
     Route: 048
     Dates: start: 20070927, end: 20071020

REACTIONS (1)
  - ANGIOEDEMA [None]
